FAERS Safety Report 24838171 (Version 1)
Quarter: 2025Q1

REPORT INFORMATION
  Report Type: Report from Study
  Country: BR (occurrence: BR)
  Receive Date: 20250113
  Receipt Date: 20250113
  Transmission Date: 20250409
  Serious: Yes (Other)
  Sender: NOVARTIS
  Company Number: BR-002147023-NVSC2023BR127019

PATIENT
  Age: 70 Year
  Sex: Female

DRUGS (16)
  1. KISQALI [Suspect]
     Active Substance: RIBOCICLIB
     Indication: Breast cancer
     Route: 048
     Dates: start: 202303
  2. KISQALI [Suspect]
     Active Substance: RIBOCICLIB
     Indication: Invasive breast carcinoma
     Route: 048
     Dates: start: 20230613
  3. KISQALI [Suspect]
     Active Substance: RIBOCICLIB
     Route: 048
  4. KISQALI [Suspect]
     Active Substance: RIBOCICLIB
     Route: 048
     Dates: start: 20240201
  5. KISQALI [Suspect]
     Active Substance: RIBOCICLIB
     Dosage: 3 DOSAGE FORM, QD
     Route: 048
  6. KISQALI [Suspect]
     Active Substance: RIBOCICLIB
     Dosage: 200 MG (TAKE 3 TABLETS - 400 MG ONCE A DAY FOR 3 WEEKS EVERY 4 WEEKS)
     Route: 048
  7. KISQALI [Suspect]
     Active Substance: RIBOCICLIB
     Dosage: UNK, TID
     Route: 048
  8. ZOMETA [Suspect]
     Active Substance: ZOLEDRONIC ACID
     Indication: Product used for unknown indication
     Dosage: UNK, Q3MO (EVERY 3 MONTHS)
     Route: 065
  9. ANASTROZOLE [Suspect]
     Active Substance: ANASTROZOLE
     Indication: Product used for unknown indication
     Route: 065
  10. FULVESTRANT [Concomitant]
     Active Substance: FULVESTRANT
     Indication: Product used for unknown indication
     Dosage: UNK, QMO
     Route: 065
  11. Omega [Concomitant]
     Indication: Product used for unknown indication
     Route: 065
  12. VITAMIN C [Concomitant]
     Active Substance: ASCORBIC ACID
     Indication: Product used for unknown indication
     Route: 065
  13. CALCIUM [Concomitant]
     Active Substance: CALCIUM
     Indication: Product used for unknown indication
     Route: 065
  14. OMEGA 3 [Concomitant]
     Active Substance: CAPSAICIN
     Indication: Product used for unknown indication
     Route: 065
  15. HYDROXOCOBALAMIN [Concomitant]
     Active Substance: HYDROXOCOBALAMIN
     Indication: Product used for unknown indication
     Route: 065
  16. ALENDRONATE SODIUM [Concomitant]
     Active Substance: ALENDRONATE SODIUM
     Indication: Product used for unknown indication
     Route: 065

REACTIONS (13)
  - Leukopenia [Recovering/Resolving]
  - Decreased immune responsiveness [Recovering/Resolving]
  - Memory impairment [Not Recovered/Not Resolved]
  - Influenza [Recovered/Resolved]
  - Drug ineffective [Unknown]
  - Weight increased [Unknown]
  - Nasopharyngitis [Unknown]
  - Incorrect dose administered [Unknown]
  - Aphthous ulcer [Not Recovered/Not Resolved]
  - Gastrointestinal disorder [Unknown]
  - Illness [Recovered/Resolved]
  - Influenza [Recovered/Resolved]
  - Injury associated with device [Not Recovered/Not Resolved]

NARRATIVE: CASE EVENT DATE: 20230301
